FAERS Safety Report 5990408-5 (Version None)
Quarter: 2008Q4

REPORT INFORMATION
  Report Type: 
  Country: None (occurrence: None)
  Receive Date: 20081211
  Receipt Date: 20081203
  Transmission Date: 20090506
  Serious: Yes (Hospitalization)
  Sender: FDA-Public Use
  Company Number: FR-ASTRAZENECA-2008CG01774

PATIENT
  Age: 44 Year
  Sex: Male

DRUGS (7)
  1. ATACAND [Suspect]
     Indication: HYPERTENSION
     Route: 048
     Dates: start: 20061201, end: 20081003
  2. ACARBOSE [Suspect]
     Indication: TYPE 2 DIABETES MELLITUS
     Route: 048
     Dates: start: 20080829, end: 20080927
  3. ACARBOSE [Suspect]
     Route: 048
     Dates: start: 20080930, end: 20081003
  4. AMARYL [Suspect]
     Indication: TYPE 2 DIABETES MELLITUS
     Route: 048
     Dates: start: 20080821, end: 20080927
  5. AMARYL [Suspect]
     Route: 048
     Dates: start: 20080930, end: 20081003
  6. METFORMIN HCL [Suspect]
     Indication: TYPE 2 DIABETES MELLITUS
     Route: 048
     Dates: start: 20080819, end: 20080927
  7. METFORMIN HCL [Suspect]
     Route: 048
     Dates: start: 20080930, end: 20081003

REACTIONS (2)
  - HEPATITIS CHOLESTATIC [None]
  - PYREXIA [None]
